FAERS Safety Report 20884875 (Version 1)
Quarter: 2022Q2

REPORT INFORMATION
  Report Type: Report from Study
  Country: US (occurrence: US)
  Receive Date: 20220527
  Receipt Date: 20220527
  Transmission Date: 20220721
  Serious: Yes (Other)
  Sender: FDA-Public Use
  Company Number: US-TAKEDA-2022TUS024454

PATIENT
  Sex: Female
  Weight: 75 kg

DRUGS (4)
  1. PONATINIB [Suspect]
     Active Substance: PONATINIB
     Indication: Metastases to liver
     Dosage: 15 MILLIGRAM, QD
     Route: 065
  2. PONATINIB [Suspect]
     Active Substance: PONATINIB
     Indication: Cholangiocarcinoma
     Dosage: 30 MILLIGRAM, QD
     Route: 048
     Dates: start: 20220519
  3. PONATINIB [Suspect]
     Active Substance: PONATINIB
     Indication: Renal cancer
  4. PONATINIB [Suspect]
     Active Substance: PONATINIB
     Indication: Lymphocytic leukaemia

REACTIONS (2)
  - Philadelphia chromosome positive [Unknown]
  - Off label use [Unknown]
